FAERS Safety Report 19704487 (Version 1)
Quarter: 2021Q3

REPORT INFORMATION
  Report Type: Spontaneous
  Country: US (occurrence: US)
  Receive Date: 20210815
  Receipt Date: 20210815
  Transmission Date: 20211014
  Serious: Yes (Hospitalization)
  Sender: FDA-Public Use
  Company Number: None

PATIENT
  Age: 58 Year
  Sex: Female
  Weight: 84.82 kg

DRUGS (3)
  1. EPINEPHRINE INJECTION USP.0.3 MG [Suspect]
     Active Substance: EPINEPHRINE
  2. VITAMINS [Concomitant]
     Active Substance: VITAMINS
  3. TAMOXIFEN [Concomitant]
     Active Substance: TAMOXIFEN

REACTIONS (5)
  - Arthropod sting [None]
  - Crying [None]
  - Near death experience [None]
  - Swelling [None]
  - Drug delivery system malfunction [None]

NARRATIVE: CASE EVENT DATE: 20210811
